FAERS Safety Report 5892632-9 (Version None)
Quarter: 2008Q3

REPORT INFORMATION
  Report Type: 
  Country: None (occurrence: None)
  Receive Date: 20080919
  Receipt Date: 20080919
  Transmission Date: 20090109
  Serious: Yes (Other)
  Sender: FDA-Public Use
  Company Number: None

PATIENT
  Age: 36 Year
  Sex: Male
  Weight: 136.0791 kg

DRUGS (1)
  1. CRESTOR [Suspect]
     Indication: BLOOD CHOLESTEROL INCREASED
     Dosage: 1 TAB DAILY PO
     Route: 048
     Dates: start: 20080723, end: 20080902

REACTIONS (3)
  - DIARRHOEA [None]
  - MUSCLE DISORDER [None]
  - MUSCLE SPASMS [None]
